FAERS Safety Report 10248728 (Version 2)
Quarter: 2014Q3

REPORT INFORMATION
  Report Type: Spontaneous
  Country: US (occurrence: US)
  Receive Date: 20140620
  Receipt Date: 20140731
  Transmission Date: 20150326
  Serious: No
  Sender: FDA-Public Use
  Company Number: US-ASTRAZENECA-2014SE40945

PATIENT
  Age: 52 Year
  Sex: Female
  Weight: 52.2 kg

DRUGS (2)
  1. SYMBICORT [Suspect]
     Active Substance: BUDESONIDE\FORMOTEROL FUMARATE DIHYDRATE
     Indication: ASTHMA
     Dosage: 160/4.5 MCG, 2 PUFFS BID
     Route: 055
  2. SYNTHROID [Concomitant]
     Active Substance: LEVOTHYROXINE SODIUM
     Indication: THYROID DISORDER
     Dosage: 112MCG DAILY

REACTIONS (3)
  - Nasopharyngitis [Recovering/Resolving]
  - Dyspnoea [Unknown]
  - Drug dose omission [Unknown]

NARRATIVE: CASE EVENT DATE: 20140609
